FAERS Safety Report 16392800 (Version 2)
Quarter: 2019Q2

REPORT INFORMATION
  Report Type: Spontaneous
  Country: ES (occurrence: ES)
  Receive Date: 20190605
  Receipt Date: 20190607
  Transmission Date: 20190711
  Serious: Yes (Hospitalization, Other)
  Sender: FDA-Public Use
  Company Number: PHHY2019ES126263

PATIENT
  Age: 51 Year
  Sex: Female

DRUGS (2)
  1. TAFINLAR [Suspect]
     Active Substance: DABRAFENIB MESYLATE
     Indication: METASTATIC MALIGNANT MELANOMA
     Dosage: 300 MG, QD  (150 MG Q12H)
     Route: 048
     Dates: start: 20190501, end: 20190511
  2. MEKINIST [Suspect]
     Active Substance: TRAMETINIB DIMETHYL SULFOXIDE
     Indication: METASTATIC MALIGNANT MELANOMA
     Dosage: 2 MG, QD (2 MG Q24 HOURS)
     Route: 048
     Dates: start: 20190501, end: 20190511

REACTIONS (13)
  - Septic shock [Unknown]
  - Coagulopathy [Recovering/Resolving]
  - Thrombocytopenia [Recovering/Resolving]
  - Hypotension [Recovering/Resolving]
  - Drug reaction with eosinophilia and systemic symptoms [Recovered/Resolved]
  - Mucosal inflammation [Recovering/Resolving]
  - Blood creatine phosphokinase increased [Unknown]
  - Blood bilirubin increased [Unknown]
  - Hyperthermia [Recovering/Resolving]
  - Skin lesion [Recovering/Resolving]
  - Cholestasis [Recovering/Resolving]
  - Toxic skin eruption [Recovering/Resolving]
  - Generalised oedema [Recovering/Resolving]

NARRATIVE: CASE EVENT DATE: 20190510
